FAERS Safety Report 4334970-7 (Version None)
Quarter: 2004Q2

REPORT INFORMATION
  Report Type: 
  Country: None (occurrence: None)
  Receive Date: 20040405
  Receipt Date: 20040324
  Transmission Date: 20050107
  Serious: Yes (Hospitalization)
  Sender: FDA-Public Use
  Company Number: UKP04000125

PATIENT
  Sex: Male

DRUGS (1)
  1. ASACOL [Suspect]
     Indication: COLITIS ULCERATIVE
     Dosage: 400 MG, 3 /DAY, ORAL
     Route: 048

REACTIONS (4)
  - DYSPNOEA [None]
  - HAEMOPTYSIS [None]
  - LOWER RESPIRATORY TRACT INFECTION [None]
  - PNEUMONITIS [None]
